FAERS Safety Report 20130482 (Version 2)
Quarter: 2021Q4

REPORT INFORMATION
  Report Type: Spontaneous
  Country: NL (occurrence: NL)
  Receive Date: 20211130
  Receipt Date: 20211216
  Transmission Date: 20220303
  Serious: Yes (Other)
  Sender: FDA-Public Use
  Company Number: NL-CELGENE-NLD-20211001208

PATIENT
  Age: 60 Year
  Sex: Female
  Weight: 97.5 kg

DRUGS (25)
  1. DEXAMETHASONE [Suspect]
     Active Substance: DEXAMETHASONE
     Indication: Prophylaxis
     Dosage: UNK
     Route: 065
  2. DEXAMETHASONE [Suspect]
     Active Substance: DEXAMETHASONE
     Dosage: 40
     Dates: start: 20210531, end: 20210705
  3. DEXAMETHASONE [Suspect]
     Active Substance: DEXAMETHASONE
     Dosage: 40
     Route: 065
     Dates: start: 20210519
  4. LENALIDOMIDE [Suspect]
     Active Substance: LENALIDOMIDE
     Indication: Product used for unknown indication
     Dosage: UNK
     Route: 048
  5. LENALIDOMIDE [Suspect]
     Active Substance: LENALIDOMIDE
     Dosage: 25
     Route: 048
     Dates: start: 20210531, end: 20210706
  6. ISATUXIMAB [Suspect]
     Active Substance: ISATUXIMAB
     Indication: Product used for unknown indication
     Dosage: UNK
     Route: 048
     Dates: start: 20210531, end: 20210628
  7. CARFILZOMIB [Suspect]
     Active Substance: CARFILZOMIB
     Indication: Product used for unknown indication
     Dosage: 118
     Route: 065
     Dates: start: 20210531, end: 20210705
  8. CARFILZOMIB [Suspect]
     Active Substance: CARFILZOMIB
     Dosage: UNK
     Route: 065
  9. COTRIMOXAZOLE [Concomitant]
     Active Substance: SULFAMETHOXAZOLE\TRIMETHOPRIM
     Indication: Prophylaxis
     Dosage: UNK
     Route: 065
     Dates: start: 20210607, end: 20210926
  10. NADROPARIN [Concomitant]
     Active Substance: NADROPARIN
     Indication: Endometrial cancer
     Dosage: UNK
     Route: 065
     Dates: start: 20210922, end: 20210923
  11. CLEMASTINE [Concomitant]
     Active Substance: CLEMASTINE
     Indication: Prophylaxis
     Dosage: UNK
     Route: 065
     Dates: start: 20210531, end: 20210906
  12. ACETYLSALICYLATE ARGININE [Concomitant]
     Indication: Prophylaxis
     Dosage: UNK
     Route: 065
     Dates: start: 20210531, end: 20210926
  13. CALCIUM CARBONATE [Concomitant]
     Active Substance: CALCIUM CARBONATE
     Indication: Prophylaxis
     Dosage: UNK
     Route: 065
     Dates: start: 20210531
  14. UNSPECIFIED INGREDIENT [Concomitant]
     Active Substance: UNSPECIFIED INGREDIENT
     Indication: Hypophosphataemia
     Dosage: UNK
  15. AMLODIPINE [Concomitant]
     Active Substance: AMLODIPINE BESYLATE
     Indication: Product used for unknown indication
     Dosage: UNK
     Route: 065
     Dates: start: 20210531
  16. METOPROLOL [Concomitant]
     Active Substance: METOPROLOL
     Indication: Endometrial cancer
     Dosage: UNK
     Route: 065
     Dates: start: 20210922, end: 20210930
  17. METOPROLOL [Concomitant]
     Active Substance: METOPROLOL
     Indication: Hypertension
     Dosage: UNK
     Route: 065
     Dates: start: 20210309, end: 20210607
  18. OXYCODONE [Concomitant]
     Active Substance: OXYCODONE
     Indication: Endometrial cancer
     Dosage: UNK
     Route: 065
     Dates: start: 20210923, end: 20210929
  19. MAGNESIUM GLUCONATE [Concomitant]
     Active Substance: MAGNESIUM GLUCONATE
     Indication: Muscle spasms
     Dosage: UNK
     Route: 065
     Dates: start: 20210614
  20. NAPROXEN [Concomitant]
     Active Substance: NAPROXEN
     Indication: Prophylaxis
     Dosage: UNK
     Route: 065
     Dates: start: 20210623, end: 20210623
  21. FLUCONAZOLE [Concomitant]
     Active Substance: FLUCONAZOLE
     Indication: Prophylaxis
     Dosage: UNK
     Route: 065
     Dates: start: 20210531, end: 20210926
  22. ACETAMINOPHEN [Concomitant]
     Active Substance: ACETAMINOPHEN
     Indication: Prophylaxis
     Dosage: UNK
     Route: 065
     Dates: start: 20210531, end: 20210906
  23. ACETAMINOPHEN [Concomitant]
     Active Substance: ACETAMINOPHEN
     Indication: Endometrial cancer
     Dosage: UNK
     Route: 065
     Dates: start: 20210922, end: 20210929
  24. ZOLEDRONIC ACID [Concomitant]
     Active Substance: ZOLEDRONIC ACID
     Indication: Prophylaxis
     Dosage: UNK
     Route: 065
     Dates: start: 20210705
  25. PANTOPRAZOLE [Concomitant]
     Active Substance: PANTOPRAZOLE
     Indication: Prophylaxis
     Dosage: UNK
     Dates: start: 20210531

REACTIONS (1)
  - Endometrial adenocarcinoma [Recovered/Resolved]

NARRATIVE: CASE EVENT DATE: 20210706
